FAERS Safety Report 12608415 (Version 1)
Quarter: 2016Q3

REPORT INFORMATION
  Report Type: Spontaneous
  Country: NO (occurrence: NO)
  Receive Date: 20160729
  Receipt Date: 20160729
  Transmission Date: 20161109
  Serious: Yes (Hospitalization, Other)
  Sender: FDA-Public Use
  Company Number: NO-SA-2016SA134691

PATIENT
  Age: 32 Year
  Sex: Female

DRUGS (5)
  1. CETIRIZINE [Concomitant]
     Active Substance: CETIRIZINE HYDROCHLORIDE
     Route: 048
  2. ACICLOVIR [Concomitant]
     Active Substance: ACYCLOVIR
     Route: 048
     Dates: start: 2016, end: 201605
  3. LEMTRADA [Suspect]
     Active Substance: ALEMTUZUMAB
     Indication: BAND SENSATION
     Route: 065
     Dates: start: 20160418, end: 20160420
  4. LEMTRADA [Suspect]
     Active Substance: ALEMTUZUMAB
     Indication: BAND SENSATION
     Route: 065
     Dates: start: 20150415, end: 20150417
  5. SOLU-MEDROL [Concomitant]
     Active Substance: METHYLPREDNISOLONE SODIUM SUCCINATE
     Route: 040

REACTIONS (1)
  - Smear cervix abnormal [Not Recovered/Not Resolved]

NARRATIVE: CASE EVENT DATE: 20150516
